FAERS Safety Report 6227465-7 (Version None)
Quarter: 2009Q2

REPORT INFORMATION
  Report Type: 
  Country: None (occurrence: None)
  Receive Date: 20090612
  Receipt Date: 20090602
  Transmission Date: 20091009
  Serious: Yes (Hospitalization)
  Sender: FDA-Public Use
  Company Number: PHHY2009FR21916

PATIENT
  Sex: Female

DRUGS (10)
  1. VOLTAREN [Suspect]
     Dosage: UNK
     Route: 048
  2. RIVOTRIL [Suspect]
     Indication: EPILEPSY
     Dosage: 5 DRP, QD
     Route: 048
     Dates: start: 20080908, end: 20081015
  3. IXPRIM [Suspect]
     Route: 048
  4. AVLOCARDYL [Suspect]
     Indication: HYPERTENSION
     Dosage: 40 MG, QD
     Route: 048
     Dates: start: 20080908, end: 20081015
  5. CONTRAMAL [Suspect]
     Dosage: 300 MG, QD
     Route: 048
     Dates: start: 20080908, end: 20080916
  6. DAFALGAN [Suspect]
     Indication: PAIN
     Dosage: 4 G, QD
     Route: 048
     Dates: start: 20080908, end: 20080930
  7. BIPROFENID [Suspect]
     Indication: NEURALGIA
     Dosage: 150 MG, BID
     Route: 048
     Dates: start: 20080908, end: 20080916
  8. PROFENID [Suspect]
     Indication: NEURALGIA
     Dosage: 600 MG, QD
     Dates: start: 20080908, end: 20080909
  9. MOPRAL [Suspect]
     Dosage: 20 MG, QD
     Route: 048
     Dates: start: 20080908, end: 20080930
  10. MYOLASTAN [Suspect]
     Dosage: 100 MG, QD
     Route: 048
     Dates: start: 20080908, end: 20081015

REACTIONS (5)
  - ABDOMINAL PAIN UPPER [None]
  - CERVICAL ROOT PAIN [None]
  - HEPATITIS CHOLESTATIC [None]
  - PAIN [None]
  - RESPIRATORY DISORDER [None]
